FAERS Safety Report 17779455 (Version 1)
Quarter: 2020Q2

REPORT INFORMATION
  Report Type: Spontaneous
  Country: BR (occurrence: BR)
  Receive Date: 20200513
  Receipt Date: 20200513
  Transmission Date: 20200714
  Serious: Yes (Hospitalization, Other)
  Sender: FDA-Public Use
  Company Number: BR-SA-2020SA109353

PATIENT
  Sex: Female
  Weight: 49 kg

DRUGS (2)
  1. NOVORAPID [Concomitant]
     Active Substance: INSULIN ASPART
     Indication: DIABETES MELLITUS
     Dosage: 3X A DAY, TIMES UP TO 5 TIMES A DAY
     Route: 058
  2. LANTUS [Suspect]
     Active Substance: INSULIN GLARGINE
     Indication: DIABETES MELLITUS
     Dosage: 48 IU, QD
     Route: 058
     Dates: start: 2005

REACTIONS (6)
  - Immunodeficiency [Unknown]
  - Pharyngitis [Unknown]
  - Hypoglycaemia [Unknown]
  - Expired product administered [Not Recovered/Not Resolved]
  - Blood glucose increased [Not Recovered/Not Resolved]
  - Tonsillitis [Unknown]
